FAERS Safety Report 21270535 (Version 2)
Quarter: 2024Q1

REPORT INFORMATION
  Report Type: Report from Study
  Country: US (occurrence: US)
  Receive Date: 20220830
  Receipt Date: 20240223
  Transmission Date: 20240409
  Serious: Yes (Other)
  Sender: FDA-Public Use
  Company Number: US-NOVARTISPH-NVSC2022US191679

PATIENT

DRUGS (9)
  1. GILENYA [Suspect]
     Active Substance: FINGOLIMOD HYDROCHLORIDE
     Indication: Foetal exposure during pregnancy
     Dosage: MATERNAL DOSE: 0.5 MG QD
     Route: 064
     Dates: start: 201806
  2. GILENYA [Suspect]
     Active Substance: FINGOLIMOD HYDROCHLORIDE
     Dosage: MATERNAL DOSE: 0.5 MG QD
     Route: 064
     Dates: start: 2019
  3. DEPAKOTE [Suspect]
     Active Substance: DIVALPROEX SODIUM
     Indication: Foetal exposure during pregnancy
     Dosage: UNK
     Route: 064
  4. LAMICTAL [Suspect]
     Active Substance: LAMOTRIGINE
     Indication: Foetal exposure during pregnancy
     Dosage: MATERNAL DOSE: 100 OR 200
     Route: 064
  5. TIZANIDINE [Suspect]
     Active Substance: TIZANIDINE
     Indication: Foetal exposure during pregnancy
     Dosage: UNK
     Route: 064
  6. CLONAZEPAM [Concomitant]
     Active Substance: CLONAZEPAM
     Indication: Foetal exposure during pregnancy
     Dosage: MATERNAL DOSE: 0.5
     Route: 064
  7. MIRTAZAPINE [Concomitant]
     Active Substance: MIRTAZAPINE
     Indication: Foetal exposure during pregnancy
     Dosage: UNK
     Route: 064
  8. PRAZOSIN [Concomitant]
     Active Substance: PRAZOSIN
     Indication: Foetal exposure during pregnancy
     Dosage: MATERNAL DOSE: 1 MG (FREQUENCY: NOT REPORTED)
     Route: 064
  9. ZOFRAN [Concomitant]
     Active Substance: ONDANSETRON HYDROCHLORIDE
     Indication: Foetal exposure during pregnancy
     Dosage: UNK
     Route: 064

REACTIONS (4)
  - Foetal growth restriction [Unknown]
  - Musculoskeletal disorder [Unknown]
  - Small for dates baby [Unknown]
  - Foetal exposure during pregnancy [Unknown]
